FAERS Safety Report 8504141 (Version 3)
Quarter: 2013Q1

REPORT INFORMATION
  Report Type: Spontaneous
  Country: DK (occurrence: DK)
  Receive Date: 20120411
  Receipt Date: 20130103
  Transmission Date: 20140127
  Serious: Yes (Hospitalization, Disabling, Other)
  Sender: FDA-Public Use
  Company Number: DK-ROCHE-1056888

PATIENT
  Sex: Male

DRUGS (3)
  1. LUCENTIS [Suspect]
     Indication: RETINAL VEIN OCCLUSION
     Dosage: 10 MG/ML
     Route: 050
     Dates: start: 20100303
  2. LUCENTIS [Suspect]
     Dosage: 10 MG/ML
     Route: 050
  3. LUCENTIS [Suspect]
     Dosage: 10 MG/ML
     Route: 050
     Dates: start: 20100317

REACTIONS (14)
  - Renal failure [Not Recovered/Not Resolved]
  - Ocular ischaemic syndrome [Not Recovered/Not Resolved]
  - Cataract [Unknown]
  - Thrombotic microangiopathy [Not Recovered/Not Resolved]
  - Glaucoma [Unknown]
  - Vitreous haemorrhage [Unknown]
  - Hypertension [Unknown]
  - Nausea [Unknown]
  - Vomiting [Unknown]
  - Retinal disorder [Unknown]
  - Headache [Unknown]
  - Inappropriate schedule of drug administration [Unknown]
  - Visual acuity reduced [Unknown]
  - Intraocular pressure increased [Unknown]
